FAERS Safety Report 6970403-X (Version None)
Quarter: 2010Q3

REPORT INFORMATION
  Report Type: 
  Country: None (occurrence: None)
  Receive Date: 20100908
  Receipt Date: 20100830
  Transmission Date: 20110219
  Serious: Yes (Other)
  Sender: FDA-Public Use
  Company Number: CH-PFIZER INC-2010109203

PATIENT
  Age: 44 Year
  Sex: Female

DRUGS (1)
  1. SORTIS [Suspect]
     Dosage: 40 MG, 1X/DAY
     Dates: end: 20100101

REACTIONS (2)
  - FRACTURE [None]
  - MUSCLE SPASMS [None]
